FAERS Safety Report 9207381 (Version 2)
Quarter: 2013Q2

REPORT INFORMATION
  Report Type: Report from Study
  Country: US (occurrence: US)
  Receive Date: 20130403
  Receipt Date: 20130522
  Transmission Date: 20140414
  Serious: Yes (Other)
  Sender: FDA-Public Use
  Company Number: US-ROCHE-1167797

PATIENT
  Age: 46 Year
  Sex: Female
  Weight: 77.63 kg

DRUGS (7)
  1. PEGASYS [Suspect]
     Indication: CHRONIC HEPATITIS C
     Route: 058
     Dates: start: 20121210
  2. PEGASYS [Suspect]
     Route: 058
     Dates: start: 20121210
  3. TELAPREVIR [Suspect]
     Indication: CHRONIC HEPATITIS C
     Route: 065
     Dates: start: 20121210
  4. TELAPREVIR [Suspect]
     Route: 048
     Dates: end: 20130225
  5. RIBAVIRIN [Suspect]
     Indication: CHRONIC HEPATITIS C
     Dosage: 600MG EVERY AM AND 400 MG  EVERY PM
     Route: 048
     Dates: start: 20121210
  6. RIBAVIRIN [Suspect]
     Route: 065
  7. RIBAVIRIN [Suspect]
     Dosage: 600MG EVERY AM AND 400MG EVERY PM
     Route: 048

REACTIONS (14)
  - Anaemia [Unknown]
  - White blood cell count decreased [Unknown]
  - Thrombocytopenia [Unknown]
  - Vision blurred [Not Recovered/Not Resolved]
  - Nausea [Recovering/Resolving]
  - Weight increased [Recovered/Resolved]
  - Abdominal discomfort [Unknown]
  - Malaise [Unknown]
  - Vomiting [Unknown]
  - Visual acuity reduced [Unknown]
  - Full blood count decreased [Unknown]
  - Malaise [Unknown]
  - Skin fissures [Unknown]
  - Cheilitis [Unknown]
